FAERS Safety Report 5165898-0 (Version None)
Quarter: 2006Q4

REPORT INFORMATION
  Report Type: 
  Country: None (occurrence: None)
  Receive Date: 20061128
  Receipt Date: 20061117
  Transmission Date: 20070319
  Serious: Yes (Hospitalization, Other)
  Sender: FDA-Public Use
  Company Number: 163-20785-06090528

PATIENT
  Age: 63 Year
  Sex: Female
  Weight: 67.1324 kg

DRUGS (8)
  1. THALOMID [Suspect]
     Indication: ACUTE MYELOID LEUKAEMIA
     Dosage: 200 MG ORAL
     Route: 048
     Dates: start: 20060907, end: 20060915
  2. THALIDOMIDE [Suspect]
  3. CARBOPLATIN [Suspect]
     Indication: ACUTE MYELOID LEUKAEMIA
     Dosage: 230 MG (AUC 2.4/DAY) OVER 24 HRS. X5 DOSES, INTRAVENOUS
     Route: 042
     Dates: start: 20060818, end: 20060823
  4. CARBOPLATIN [Suspect]
     Indication: ACUTE MYELOID LEUKAEMIA
     Dosage: 230 MG (AUC 2.4/DAY) OVER 24 HRS. X5 DOSES, INTRAVENOUS
     Route: 042
     Dates: start: 20060914, end: 20060919
  5. FLUDARABINE PHOSPHATE [Suspect]
     Indication: ACUTE MYELOID LEUKAEMIA
     Dosage: 24 MG (15 MG/M2), OVER 30 MIN. DAILY X5, INTRAVENOUS
     Route: 042
     Dates: start: 20060818, end: 20060823
  6. FLUDARABINE PHOSPHATE [Suspect]
     Indication: ACUTE MYELOID LEUKAEMIA
     Dosage: 24 MG (15 MG/M2), OVER 30 MIN. DAILY X5, INTRAVENOUS
     Route: 042
     Dates: start: 20060914, end: 20060918
  7. TOPOTECAN (TOPOTECAN) [Suspect]
     Indication: ACUTE MYELOID LEUKAEMIA
     Dosage: 1.4 MG (0.85 MG/M2), OVER 24 HRS. X3 DOSES, INTRAVENOUS ; 1.4 MG OVER 24 HRS X3 DOSES, INTRAVENOUS
     Route: 042
     Dates: start: 20060823, end: 20060826
  8. TOPOTECAN (TOPOTECAN) [Suspect]
     Indication: ACUTE MYELOID LEUKAEMIA
     Dosage: 1.4 MG (0.85 MG/M2), OVER 24 HRS. X3 DOSES, INTRAVENOUS ; 1.4 MG OVER 24 HRS X3 DOSES, INTRAVENOUS
     Route: 042
     Dates: start: 20060919, end: 20060922

REACTIONS (10)
  - ANGINA UNSTABLE [None]
  - CARDIAC DISORDER [None]
  - CHEST DISCOMFORT [None]
  - EJECTION FRACTION DECREASED [None]
  - HAEMATOCRIT DECREASED [None]
  - HYPERKALAEMIA [None]
  - NON-CARDIAC CHEST PAIN [None]
  - PERICARDITIS [None]
  - PLEURAL EFFUSION [None]
  - TROPONIN I INCREASED [None]
